FAERS Safety Report 8996312 (Version 1)
Quarter: 2013Q1

REPORT INFORMATION
  Report Type: Spontaneous
  Country: NL (occurrence: NL)
  Receive Date: 20130103
  Receipt Date: 20130103
  Transmission Date: 20140127
  Serious: Yes (Death)
  Sender: FDA-Public Use
  Company Number: NL-AMGEN-NLDSP2013000052

PATIENT
  Age: 84 Year
  Sex: Male

DRUGS (2)
  1. NEULASTA [Suspect]
     Indication: PRODUCT USED FOR UNKNOWN INDICATION
     Dosage: 6 MG, UNK
     Route: 058
     Dates: start: 20121204, end: 20121223
  2. CHEMOTHERAPEUTICS [Concomitant]
     Dosage: UNK

REACTIONS (1)
  - Neoplasm malignant [Fatal]
